FAERS Safety Report 18705766 (Version 2)
Quarter: 2021Q3

REPORT INFORMATION
  Report Type: Report from Study
  Country: US (occurrence: US)
  Receive Date: 20210106
  Receipt Date: 20210804
  Transmission Date: 20211014
  Serious: Yes (Death, Hospitalization)
  Sender: FDA-Public Use
  Company Number: US-SA-2020SA152180

PATIENT
  Age: 91 Year
  Sex: Male

DRUGS (1)
  1. DUPIXENT [Suspect]
     Active Substance: DUPILUMAB
     Indication: DERMATITIS ATOPIC
     Dosage: 300 MG, QOW
     Route: 058
     Dates: start: 20190612, end: 2020

REACTIONS (3)
  - COVID-19 [Fatal]
  - Disease complication [Fatal]
  - Hospitalisation [Unknown]

NARRATIVE: CASE EVENT DATE: 2020
